FAERS Safety Report 9275542 (Version 1)
Quarter: 2012Q4

REPORT INFORMATION
  Report Type: Spontaneous
  Country: US (occurrence: None)
  Receive Date: 20121109
  Receipt Date: 20121109
  Transmission Date: 20130627
  Serious: Yes (Death, Other)
  Sender: FDA-Public Use
  Company Number: 2012S1000329

PATIENT
  Age: 56 Year
  Sex: Male

DRUGS (2)
  1. CUBICIN [Suspect]
     Indication: STAPHYLOCOCCAL BACTEREMIA
     Dosage: Q48H
     Route: 042
  2. ALL OTHER THERAPEUTIC PRODUCTS [Suspect]
     Dosage: every 48 hrs
     Route: 042

REACTIONS (10)
  - Sepsis [None]
  - Anaemia [None]
  - Cardiac valve vegetation [None]
  - Mitral valve incompetence [None]
  - Cardiac valve abscess [None]
  - Thalamic infarction [None]
  - Cerebral infarction [None]
  - Systemic candida [None]
  - Multi-organ failure [None]
  - Lung infiltration [None]
